FAERS Safety Report 12148974 (Version 4)
Quarter: 2016Q3

REPORT INFORMATION
  Report Type: Report from Study
  Country: DE (occurrence: DE)
  Receive Date: 20160304
  Receipt Date: 20160919
  Transmission Date: 20161109
  Serious: Yes (Hospitalization)
  Sender: FDA-Public Use
  Company Number: PHHY2016DE025075

PATIENT
  Sex: Female
  Weight: 75 kg

DRUGS (13)
  1. COSENTYX [Suspect]
     Active Substance: SECUKINUMAB
     Dosage: 300 MG, QW
     Route: 065
     Dates: start: 20160127
  2. L THYROX [Concomitant]
     Indication: HYPOTHYROIDISM
     Dosage: 150 MG, QD
     Route: 048
     Dates: start: 20020101
  3. SUMATRIPTAN. [Concomitant]
     Active Substance: SUMATRIPTAN
     Indication: DEPRESSION
     Dosage: 100 MG, QD
     Route: 048
     Dates: start: 20130101
  4. COSENTYX [Suspect]
     Active Substance: SECUKINUMAB
     Dosage: 300 MG, (PER APPLICATION)
     Route: 065
     Dates: start: 20160322
  5. ENALAPRIL [Concomitant]
     Active Substance: ENALAPRIL
     Indication: HYPERTENSION
     Dosage: 10 MG, QD
     Route: 048
     Dates: start: 20110101
  6. COSENTYX [Suspect]
     Active Substance: SECUKINUMAB
     Indication: PSORIASIS
     Dosage: 300 MG, QW
     Route: 065
     Dates: start: 20160120
  7. IBUPROFEN. [Concomitant]
     Active Substance: IBUPROFEN
     Indication: BACK PAIN
     Dosage: 800 MG, QD
     Route: 048
     Dates: start: 20140101
  8. COSENTYX [Suspect]
     Active Substance: SECUKINUMAB
     Dosage: 300 MG, QW
     Route: 065
     Dates: start: 20160210
  9. CLOBETASOL PROPIONATE. [Concomitant]
     Active Substance: CLOBETASOL PROPIONATE
     Indication: PSORIASIS
     Dosage: 1 DF, QD
     Route: 061
     Dates: start: 20091126, end: 20160119
  10. CLOBETASOL PROPIONATE. [Concomitant]
     Active Substance: CLOBETASOL PROPIONATE
     Dosage: 2 DF, QD
     Route: 061
     Dates: start: 20160120
  11. TRIMIPRAMINE [Concomitant]
     Active Substance: TRIMIPRAMINE
     Indication: DEPRESSION
     Dosage: 100 MG, QD
     Route: 048
     Dates: start: 20120101
  12. COSENTYX [Suspect]
     Active Substance: SECUKINUMAB
     Dosage: 300 MG, QW
     Route: 065
     Dates: start: 20160203
  13. SIMVASTATIN. [Concomitant]
     Active Substance: SIMVASTATIN
     Indication: HYPERCHOLESTEROLAEMIA
     Dosage: 20 MG, QD
     Route: 048
     Dates: start: 20100101

REACTIONS (3)
  - Dermatitis [Recovering/Resolving]
  - Parotid gland enlargement [Recovering/Resolving]
  - Lymphadenitis [Recovering/Resolving]

NARRATIVE: CASE EVENT DATE: 20160212
